FAERS Safety Report 19362111 (Version 32)
Quarter: 2024Q2

REPORT INFORMATION
  Report Type: Spontaneous
  Country: IN (occurrence: IN)
  Receive Date: 20210601
  Receipt Date: 20240626
  Transmission Date: 20240716
  Serious: Yes (Hospitalization, Other)
  Sender: FDA-Public Use
  Company Number: IN-PFIZER INC-2019512774

PATIENT
  Age: 66 Year
  Sex: Female

DRUGS (14)
  1. PALBOCICLIB [Suspect]
     Active Substance: PALBOCICLIB
     Indication: Breast cancer metastatic
     Dosage: 125 MG, 1X/DAY
     Route: 048
     Dates: start: 20190429
  2. PALBOCICLIB [Suspect]
     Active Substance: PALBOCICLIB
     Dosage: 100 MG, 1X/DAY (21 DAYS AND THEN ONE WEEK OFF)
     Route: 048
  3. LETROZOLE [Concomitant]
     Active Substance: LETROZOLE
     Dosage: UNK UNK, 1X/DAY  WITH OR WITHOUT FOOD
     Route: 048
     Dates: start: 20190429
  4. ZOLEDRONIC ACID [Concomitant]
     Active Substance: ZOLEDRONIC ACID
     Dosage: UNK, MONTHLY
     Dates: start: 20190429
  5. ZOLEDRONIC ACID [Concomitant]
     Active Substance: ZOLEDRONIC ACID
     Dosage: UNK
     Dates: end: 202308
  6. ZOLEDRONIC ACID [Concomitant]
     Active Substance: ZOLEDRONIC ACID
     Dosage: 250ML NS OVER 30 MINUTE
     Route: 042
     Dates: start: 202309, end: 202309
  7. ZOLEDRONIC ACID [Concomitant]
     Active Substance: ZOLEDRONIC ACID
     Dosage: 250ML NS OVER 30 MINUTE
     Route: 042
     Dates: end: 202310
  8. GLIMISAVE [Concomitant]
     Dosage: UNK
  9. ISTAMET XR CP [Concomitant]
     Dosage: UNK
  10. ASPIRIN\ATORVASTATIN [Concomitant]
     Active Substance: ASPIRIN\ATORVASTATIN
     Dosage: (75+ 10) HS
  11. TENEFIT M [Concomitant]
     Dosage: UNK
  12. METLAR [Concomitant]
     Dosage: UNK, 1X/DAY
  13. METLAR [Concomitant]
     Dosage: 50 OD
  14. NIFTRAN [Concomitant]
     Dosage: UNK
     Dates: start: 20220617

REACTIONS (40)
  - Thrombocytopenia [Unknown]
  - Pyrexia [Recovering/Resolving]
  - Abdominal pain [Unknown]
  - Amoebiasis [Unknown]
  - Anaemia [Unknown]
  - Neutropenia [Unknown]
  - Alpha haemolytic streptococcal infection [Unknown]
  - Diabetes mellitus inadequate control [Unknown]
  - Cataract [Unknown]
  - Klebsiella infection [Unknown]
  - Neoplasm progression [Unknown]
  - Diarrhoea [Unknown]
  - Escherichia test positive [Unknown]
  - Glycosylated haemoglobin increased [Not Recovered/Not Resolved]
  - Haemoglobin decreased [Not Recovered/Not Resolved]
  - Blood potassium decreased [Unknown]
  - Lymphocyte count increased [Unknown]
  - Pollakiuria [Unknown]
  - Lacrimation increased [Unknown]
  - Vision blurred [Unknown]
  - White blood cells urine positive [Unknown]
  - Urinary tract infection bacterial [Not Recovered/Not Resolved]
  - Neutrophil count abnormal [Unknown]
  - Prothrombin time prolonged [Unknown]
  - Blood urea increased [Unknown]
  - Aspartate aminotransferase increased [Unknown]
  - Blood glucose increased [Not Recovered/Not Resolved]
  - White blood cell count decreased [Unknown]
  - Renal cyst [Unknown]
  - Platelet count decreased [Unknown]
  - Blood iron abnormal [Unknown]
  - Angiopathy [Unknown]
  - Hepatic steatosis [Unknown]
  - Transferrin saturation decreased [Unknown]
  - Red blood cell sedimentation rate increased [Unknown]
  - Red cell distribution width increased [Unknown]
  - Mean platelet volume increased [Unknown]
  - White blood cells urine positive [Unknown]
  - Vitamin B12 increased [Not Recovered/Not Resolved]
  - Blood calcium increased [Recovered/Resolved]

NARRATIVE: CASE EVENT DATE: 20190512
